FAERS Safety Report 6984001-5 (Version None)
Quarter: 2010Q3

REPORT INFORMATION
  Report Type: 
  Country: None (occurrence: None)
  Receive Date: 20100915
  Receipt Date: 20090616
  Transmission Date: 20110219
  Serious: No
  Sender: FDA-Public Use
  Company Number: US-WYE-H09327309

PATIENT
  Sex: Female
  Weight: 76.27 kg

DRUGS (7)
  1. PRISTIQ [Suspect]
     Indication: PANIC ATTACK
     Route: 048
     Dates: start: 20090428, end: 20090512
  2. TENORMIN [Concomitant]
  3. NEXIUM [Concomitant]
  4. LIPITOR [Concomitant]
  5. ZYRTEC [Concomitant]
  6. XANAX [Concomitant]
  7. MICARDIS HCT [Concomitant]

REACTIONS (1)
  - MIDDLE INSOMNIA [None]
